FAERS Safety Report 20669496 (Version 1)
Quarter: 2022Q2

REPORT INFORMATION
  Report Type: Report from Study
  Country: GB (occurrence: GB)
  Receive Date: 20220404
  Receipt Date: 20220404
  Transmission Date: 20220721
  Serious: Yes (Other)
  Sender: FDA-Public Use
  Company Number: GB-ALXN-A202104157

PATIENT
  Sex: Female

DRUGS (4)
  1. SOLIRIS [Suspect]
     Active Substance: ECULIZUMAB
     Dosage: 900 MG, Q2W
     Route: 042
     Dates: start: 20210331
  2. SOLIRIS [Suspect]
     Active Substance: ECULIZUMAB
     Indication: Paroxysmal nocturnal haemoglobinuria
     Dosage: 600 MG, QW
     Route: 042
     Dates: start: 20210303, end: 20210324
  3. CYCLOSPORINE [Concomitant]
     Active Substance: CYCLOSPORINE
     Indication: Product used for unknown indication
     Dosage: UNK
     Route: 065
  4. PENICILLIN                         /00000901/ [Concomitant]
     Indication: Product used for unknown indication
     Dosage: UNK
     Route: 065

REACTIONS (21)
  - Aplastic anaemia [Not Recovered/Not Resolved]
  - Unresponsive to stimuli [Unknown]
  - Macular degeneration [Not Recovered/Not Resolved]
  - Syncope [Unknown]
  - Enuresis [Unknown]
  - Speech disorder [Unknown]
  - Poor venous access [Not Recovered/Not Resolved]
  - Visual impairment [Not Recovered/Not Resolved]
  - Sciatica [Recovered/Resolved]
  - Fall [Unknown]
  - Dyspnoea exertional [Not Recovered/Not Resolved]
  - Contusion [Unknown]
  - Feeling cold [Not Recovered/Not Resolved]
  - Back pain [Not Recovered/Not Resolved]
  - Dyspnoea [Not Recovered/Not Resolved]
  - Pain in extremity [Not Recovered/Not Resolved]
  - Headache [Recovered/Resolved]
  - Tremor [Unknown]
  - Dizziness [Unknown]
  - Dysarthria [Unknown]
  - Muscular weakness [Unknown]

NARRATIVE: CASE EVENT DATE: 20210406
